FAERS Safety Report 10661358 (Version 3)
Quarter: 2017Q1

REPORT INFORMATION
  Report Type: Spontaneous
  Country: ES (occurrence: ES)
  Receive Date: 20141218
  Receipt Date: 20170130
  Transmission Date: 20170428
  Serious: Yes (Death, Other)
  Sender: FDA-Public Use
  Company Number: ES-JNJFOC-20141203617

PATIENT
  Age: 5 Year
  Sex: Male

DRUGS (9)
  1. INVEGA [Suspect]
     Active Substance: PALIPERIDONE
     Indication: EPILEPTIC ENCEPHALOPATHY
     Dosage: ALTERNATE DAYS FOR TWO DAYS
     Route: 048
     Dates: start: 20141119, end: 20141203
  2. DEPAKINE [Suspect]
     Active Substance: VALPROATE SODIUM
     Indication: EPILEPSY
     Route: 048
     Dates: start: 2012, end: 20141203
  3. AMOXICILLIN. [Suspect]
     Active Substance: AMOXICILLIN
     Indication: RESPIRATORY TRACT INFECTION
     Route: 065
     Dates: start: 20141203, end: 20141203
  4. SALBUTAMOL [Suspect]
     Active Substance: ALBUTEROL
     Indication: COUGH
     Route: 065
     Dates: start: 20141203, end: 20141203
  5. INVEGA [Suspect]
     Active Substance: PALIPERIDONE
     Indication: EPILEPSY
     Dosage: ALTERNATE DAYS FOR TWO DAYS
     Route: 048
     Dates: start: 20141119, end: 20141203
  6. CODEINE PHOSPHATE HEMIHYDRATE [Suspect]
     Active Substance: CODEINE PHOSPHATE
     Indication: PRODUCT USED FOR UNKNOWN INDICATION
     Route: 048
     Dates: start: 20141203, end: 20141203
  7. NOIAFREN [Suspect]
     Active Substance: CLOBAZAM
     Indication: PRODUCT USED FOR UNKNOWN INDICATION
     Route: 048
     Dates: start: 201406, end: 20141203
  8. INVEGA [Suspect]
     Active Substance: PALIPERIDONE
     Indication: ABNORMAL BEHAVIOUR
     Dosage: ALTERNATE DAYS FOR TWO DAYS
     Route: 048
     Dates: start: 20141119, end: 20141203
  9. INVEGA [Suspect]
     Active Substance: PALIPERIDONE
     Indication: INTELLECTUAL DISABILITY
     Dosage: ALTERNATE DAYS FOR TWO DAYS
     Route: 048
     Dates: start: 20141119, end: 20141203

REACTIONS (14)
  - Sudden unexplained death in epilepsy [Fatal]
  - Off label use [Unknown]
  - Mouth haemorrhage [Not Recovered/Not Resolved]
  - Insomnia [Unknown]
  - Pneumonia [Unknown]
  - Haematemesis [Not Recovered/Not Resolved]
  - Epistaxis [Unknown]
  - Product use issue [Unknown]
  - Inappropriate schedule of drug administration [Unknown]
  - Drug administered to patient of inappropriate age [Fatal]
  - Cough [Not Recovered/Not Resolved]
  - Choking [Not Recovered/Not Resolved]
  - Secretion discharge [Not Recovered/Not Resolved]
  - Pyrexia [Not Recovered/Not Resolved]

NARRATIVE: CASE EVENT DATE: 2014
